FAERS Safety Report 19430140 (Version 2)
Quarter: 2021Q3

REPORT INFORMATION
  Report Type: Report from Study
  Country: DE (occurrence: DE)
  Receive Date: 20210617
  Receipt Date: 20210705
  Transmission Date: 20211014
  Serious: Yes (Death)
  Sender: FDA-Public Use
  Company Number: DE-BEH-2021132796

PATIENT
  Age: 84 Year
  Sex: Female
  Weight: 85 kg

DRUGS (7)
  1. VIROSTATIC [Concomitant]
  2. ACICLOVIR [Concomitant]
     Active Substance: ACYCLOVIR
  3. PRIVIGEN [Suspect]
     Active Substance: HUMAN IMMUNOGLOBULIN G
     Dosage: UNK
     Route: 042
  4. PRIVIGEN [Suspect]
     Active Substance: HUMAN IMMUNOGLOBULIN G
     Dosage: UNK
     Route: 042
     Dates: start: 20210121
  5. PRIVIGEN [Suspect]
     Active Substance: HUMAN IMMUNOGLOBULIN G
     Indication: PLASMA CELL MYELOMA
     Dosage: 30 GRAM
     Route: 042
     Dates: start: 20210121
  6. CORTICOIDEX [Concomitant]
     Active Substance: DEXAMETHASONE SODIUM PHOSPHATE
  7. DEXAMETHASONE. [Concomitant]
     Active Substance: DEXAMETHASONE

REACTIONS (1)
  - Death [Fatal]

NARRATIVE: CASE EVENT DATE: 202104
